FAERS Safety Report 23725273 (Version 6)
Quarter: 2024Q4

REPORT INFORMATION
  Report Type: Spontaneous
  Country: BR (occurrence: BR)
  Receive Date: 20240410
  Receipt Date: 20241001
  Transmission Date: 20250114
  Serious: Yes (Disabling, Other)
  Sender: CELLTRION
  Company Number: BR-CELLTRION INC.-2024BR008161

PATIENT

DRUGS (10)
  1. INFLIXIMAB [Suspect]
     Active Substance: INFLIXIMAB
     Indication: Colitis ulcerative
     Dosage: 4 AMPOULES, EVERY 4 WEEKS (100 MG EACH)
     Route: 042
     Dates: start: 20230404
  2. INFLIXIMAB [Suspect]
     Active Substance: INFLIXIMAB
     Indication: Crohn^s disease
     Dosage: EVERY 8 WEEKS
     Route: 042
  3. INFLIXIMAB [Suspect]
     Active Substance: INFLIXIMAB
     Dosage: 4 AMPOULES, EVERY 4 WEEKS
     Route: 042
     Dates: start: 20240404
  4. INFLIXIMAB [Suspect]
     Active Substance: INFLIXIMAB
     Dosage: 4 AMPOULES EVERY 4 WEEKS
     Route: 042
     Dates: start: 20240705
  5. INFLIXIMAB [Suspect]
     Active Substance: INFLIXIMAB
     Dosage: EVERY 8 WEEKS
     Route: 042
  6. INFLIXIMAB [Suspect]
     Active Substance: INFLIXIMAB
     Dosage: EVERY 4 WEEKS
     Route: 042
     Dates: start: 20240909
  7. AZATHIOPRINE [Suspect]
     Active Substance: AZATHIOPRINE
     Indication: Colitis
     Dosage: 2 TABLETS A DAY (START DATE: BETWEEN SEP AND AUG 2023); USED FOR 1 YEAR
     Route: 048
     Dates: start: 2023
  8. LOSARTAN [Concomitant]
     Active Substance: LOSARTAN
     Indication: Hypertension
     Dosage: 2 TABLETS A DAY (START DATE: 10 YEARS AGO)
     Route: 048
  9. ATENOLOL [Concomitant]
     Active Substance: ATENOLOL
     Indication: Hypertension
     Dosage: 2 TABLETS A DAY (START DATE: 2 MONTHS AGO)
     Route: 048
  10. AMLODIPINE [Concomitant]
     Active Substance: AMLODIPINE BESYLATE
     Dosage: ANLODIPINE, 1 TABLET A DAY, FOR THE TREATMENT OF HYPERTENSION, USED FOR 2 MONTHS.

REACTIONS (21)
  - Colitis ulcerative [Recovered/Resolved]
  - Pain in extremity [Recovering/Resolving]
  - COVID-19 [Recovered/Resolved]
  - Loss of personal independence in daily activities [Recovering/Resolving]
  - Vein rupture [Unknown]
  - Infusion site oedema [Unknown]
  - Arthralgia [Recovered/Resolved]
  - Arthralgia [Unknown]
  - Infection [Recovered/Resolved]
  - Dyspnoea [Recovered/Resolved]
  - Infusion site pruritus [Recovering/Resolving]
  - Pruritus [Recovered/Resolved]
  - Pruritus [Recovering/Resolving]
  - Blood pressure increased [Recovered/Resolved]
  - Skin exfoliation [Unknown]
  - Peripheral swelling [Recovering/Resolving]
  - Hypersensitivity [Unknown]
  - Muscle spasms [Recovered/Resolved]
  - Therapeutic response changed [Recovered/Resolved]
  - Therapeutic response shortened [Recovering/Resolving]
  - Intentional product use issue [Recovered/Resolved]

NARRATIVE: CASE EVENT DATE: 20240705
